FAERS Safety Report 21380371 (Version 8)
Quarter: 2024Q1

REPORT INFORMATION
  Report Type: Report from Study
  Country: US (occurrence: US)
  Receive Date: 20220927
  Receipt Date: 20240209
  Transmission Date: 20240410
  Serious: Yes (Other)
  Sender: FDA-Public Use
  Company Number: US-NOVARTISTESTPH-NVSC2022US213608

PATIENT
  Age: 42 Year
  Sex: Female

DRUGS (1)
  1. KESIMPTA [Suspect]
     Active Substance: OFATUMUMAB
     Indication: Multiple sclerosis
     Dosage: UNK
     Route: 058
     Dates: start: 20220523

REACTIONS (14)
  - Multiple sclerosis [Unknown]
  - Road traffic accident [Unknown]
  - Soft tissue injury [Unknown]
  - Nerve compression [Unknown]
  - Musculoskeletal stiffness [Unknown]
  - COVID-19 [Unknown]
  - Productive cough [Unknown]
  - Rhinorrhoea [Unknown]
  - Hypersensitivity [Unknown]
  - Fatigue [Unknown]
  - Intervertebral disc protrusion [Recovering/Resolving]
  - Bradykinesia [Recovering/Resolving]
  - Pain [Not Recovered/Not Resolved]
  - Muscular weakness [Unknown]

NARRATIVE: CASE EVENT DATE: 20220701
